FAERS Safety Report 12897602 (Version 1)
Quarter: 2016Q4

REPORT INFORMATION
  Report Type: Spontaneous
  Country: US (occurrence: US)
  Receive Date: 20161031
  Receipt Date: 20161031
  Transmission Date: 20170207
  Serious: Yes (Hospitalization, Other)
  Sender: FDA-Public Use
  Company Number: US-PFIZER INC-2016501392

PATIENT
  Age: 57 Year
  Sex: Male

DRUGS (4)
  1. PAROXETINE. [Concomitant]
     Active Substance: PAROXETINE
     Indication: HYPERTENSION
     Dosage: 20 MG, 1X/DAY
     Dates: start: 201606
  2. PAROXETINE. [Concomitant]
     Active Substance: PAROXETINE
     Indication: ANXIETY
  3. KEPPRA [Concomitant]
     Active Substance: LEVETIRACETAM
     Indication: SEIZURE
     Dosage: 500 MG, ORALLY, TABLET, 1 TABLET IN THE MORNING AND ONE AND A HALF TABLETS IN THE EVENING
     Route: 048
     Dates: start: 2014
  4. LYRICA [Suspect]
     Active Substance: PREGABALIN
     Indication: FIBROMYALGIA
     Dosage: 75 MG, 2X/DAY
     Route: 048
     Dates: start: 2014

REACTIONS (2)
  - Disease recurrence [Unknown]
  - Oesophageal rupture [Unknown]
